FAERS Safety Report 12085213 (Version 1)
Quarter: 2016Q1

REPORT INFORMATION
  Report Type: Spontaneous
  Country: US (occurrence: US)
  Receive Date: 20160217
  Receipt Date: 20160217
  Transmission Date: 20160526
  Serious: Yes (Other)
  Sender: FDA-Public Use
  Company Number: US-PFIZER INC-2016088717

PATIENT
  Age: 57 Year
  Sex: Female
  Weight: 65.77 kg

DRUGS (1)
  1. GABAPENTIN. [Suspect]
     Active Substance: GABAPENTIN
     Indication: NEUROPATHY PERIPHERAL
     Dosage: 800 MG, 4X/DAY
     Dates: start: 2012, end: 201601

REACTIONS (7)
  - Product use issue [Unknown]
  - Respiratory tract infection [Recovering/Resolving]
  - Tremor [Not Recovered/Not Resolved]
  - Dyskinesia [Recovered/Resolved]
  - Gait disturbance [Unknown]
  - Dyspnoea [Recovering/Resolving]
  - Asthenia [Not Recovered/Not Resolved]

NARRATIVE: CASE EVENT DATE: 201511
